FAERS Safety Report 21932790 (Version 1)
Quarter: 2023Q1

REPORT INFORMATION
  Report Type: Spontaneous
  Country: US (occurrence: None)
  Receive Date: 20230131
  Receipt Date: 20230131
  Transmission Date: 20230417
  Serious: No
  Sender: FDA-Public Use
  Company Number: None

PATIENT

DRUGS (13)
  1. APIXABAN [Suspect]
     Active Substance: APIXABAN
  2. ACTEMRA [Suspect]
     Active Substance: TOCILIZUMAB
  3. KEVZARA [Suspect]
     Active Substance: SARILUMAB
  4. OLUMIANT [Suspect]
     Active Substance: BARICITINIB
  5. XELJANZ [Suspect]
     Active Substance: TOFACITINIB CITRATE
  6. RINVOQ [Suspect]
     Active Substance: UPADACITINIB
  7. DASATINIB [Suspect]
     Active Substance: DASATINIB
  8. BOSUTINIB [Suspect]
     Active Substance: BOSUTINIB
  9. CALQUENCE [Suspect]
     Active Substance: ACALABRUTINIB
  10. POSACONAZOLE [Suspect]
     Active Substance: POSACONAZOLE
  11. VENCLEXTA [Suspect]
     Active Substance: VENETOCLAX
  12. MICAFUNGIN [Suspect]
     Active Substance: MICAFUNGIN
  13. XTANDI [Suspect]
     Active Substance: ENZALUTAMIDE

REACTIONS (2)
  - Contraindicated product prescribed [None]
  - Labelled drug-drug interaction medication error [None]
